FAERS Safety Report 6365676-0 (Version None)
Quarter: 2009Q3

REPORT INFORMATION
  Report Type: 
  Country: None (occurrence: None)
  Receive Date: 20090919
  Receipt Date: 20090817
  Transmission Date: 20100115
  Serious: No
  Sender: FDA-Public Use
  Company Number: US-ABBOTT-09P-163-0592787-00

PATIENT
  Sex: Female

DRUGS (3)
  1. HUMIRA [Suspect]
     Indication: DRUG USE FOR UNKNOWN INDICATION
     Dates: end: 20090801
  2. UNKNOWN HEART MEDICATIONS [Concomitant]
     Indication: DRUG USE FOR UNKNOWN INDICATION
  3. UNKNOWN PAINKILLERS [Concomitant]
     Indication: PAIN

REACTIONS (1)
  - INCORRECT DRUG ADMINISTRATION DURATION [None]
